FAERS Safety Report 24856849 (Version 1)
Quarter: 2025Q1

REPORT INFORMATION
  Report Type: Spontaneous
  Country: US (occurrence: None)
  Receive Date: 20250117
  Receipt Date: 20250117
  Transmission Date: 20250409
  Serious: Yes (Other)
  Sender: FDA-CTU
  Company Number: None

PATIENT
  Age: 60 Year
  Sex: Female

DRUGS (6)
  1. PROLIA [Suspect]
     Active Substance: DENOSUMAB
     Indication: Osteoporosis
     Route: 058
  2. CALCIUM TAB 600MG [Concomitant]
  3. HYDROCODONE TAB 20MG ER [Concomitant]
  4. HYDROXYCHLOROQUINE [Concomitant]
     Active Substance: HYDROXYCHLOROQUINE
  5. LEVOTHYROXIN TAB 100MCG [Concomitant]
  6. TRAMADOL HCL TAB 50MG [Concomitant]

REACTIONS (1)
  - Spinal operation [None]

NARRATIVE: CASE EVENT DATE: 20241203
